FAERS Safety Report 6259299-1 (Version None)
Quarter: 2009Q3

REPORT INFORMATION
  Report Type: 
  Country: None (occurrence: None)
  Receive Date: 20090707
  Receipt Date: 20090701
  Transmission Date: 20100115
  Serious: Yes (Hospitalization)
  Sender: FDA-Public Use
  Company Number: PHEH2009US06381

PATIENT
  Sex: Male

DRUGS (6)
  1. CLOZARIL [Suspect]
     Indication: SCHIZOAFFECTIVE DISORDER
     Dosage: 500 MEQ/KG, QD
     Route: 048
     Dates: start: 20081001, end: 20090616
  2. CLOZARIL [Suspect]
     Dosage: 400 MG, UNK
     Dates: start: 20090616, end: 20090617
  3. CLOZARIL [Suspect]
     Dosage: 200 MG, UNK
     Dates: start: 20090617
  4. PAXIL [Concomitant]
     Dosage: UNK, UNK
  5. DEPAKOTE [Concomitant]
     Dosage: 1000 MG, UNK
     Dates: end: 20090601
  6. KLONOPIN [Concomitant]

REACTIONS (6)
  - LUDWIG ANGINA [None]
  - NEUTROPHIL COUNT INCREASED [None]
  - SEPSIS [None]
  - SURGERY [None]
  - TOOTH ABSCESS [None]
  - WHITE BLOOD CELL COUNT INCREASED [None]
